FAERS Safety Report 8388259-X (Version None)
Quarter: 2012Q2

REPORT INFORMATION
  Report Type: 
  Country: None (occurrence: None)
  Receive Date: 20120525
  Receipt Date: 20120522
  Transmission Date: 20120825
  Serious: Yes (Other)
  Sender: FDA-Public Use
  Company Number: US-PFIZER INC-2012009201

PATIENT
  Sex: Female

DRUGS (5)
  1. EFFEXOR XR [Suspect]
     Indication: DEPRESSION
     Dosage: 150MG DAILY
     Dates: start: 20120510
  2. TRAZODONE [Concomitant]
     Indication: SLEEP DISORDER
     Dosage: 150 MG, 1X/DAY
  3. CYMBALTA [Suspect]
     Indication: ANXIETY DISORDER
     Dosage: 1 OR 2 TABLET DAILY
     Route: 048
     Dates: start: 20120401, end: 20120401
  4. EFFEXOR XR [Suspect]
     Indication: ANXIETY DISORDER
     Dosage: 150 MG, 1X/DAY
     Dates: end: 20120330
  5. CYMBALTA [Suspect]
     Indication: DEPRESSION

REACTIONS (15)
  - INSOMNIA [None]
  - DIARRHOEA [None]
  - HYPOAESTHESIA [None]
  - MALAISE [None]
  - HYPERHIDROSIS [None]
  - DIZZINESS [None]
  - FEELING ABNORMAL [None]
  - WITHDRAWAL SYNDROME [None]
  - SPEECH DISORDER [None]
  - NAUSEA [None]
  - MOVEMENT DISORDER [None]
  - DRUG ABUSER [None]
  - TRANSIENT ISCHAEMIC ATTACK [None]
  - ILL-DEFINED DISORDER [None]
  - DEPRESSION [None]
